FAERS Safety Report 5780869-9 (Version None)
Quarter: 2008Q2

REPORT INFORMATION
  Report Type: 
  Country: None (occurrence: None)
  Receive Date: 20080618
  Receipt Date: 20080605
  Transmission Date: 20081010
  Serious: Yes (Death)
  Sender: FDA-Public Use
  Company Number: 2008AL004950

PATIENT
  Age: 61 Year
  Sex: Male
  Weight: 95.2554 kg

DRUGS (4)
  1. DIGOXIN [Suspect]
     Indication: MYOCARDIAL INFARCTION
     Dosage: .125 MG PO
     Route: 048
     Dates: start: 20060805, end: 20060819
  2. SPIRONOLACTONE [Concomitant]
  3. PREDNISONE [Concomitant]
  4. LIPITOR [Concomitant]

REACTIONS (1)
  - HEART RATE DECREASED [None]
